FAERS Safety Report 9413426 (Version 3)
Quarter: 2013Q3

REPORT INFORMATION
  Report Type: Spontaneous
  Country: JP (occurrence: JP)
  Receive Date: 20130722
  Receipt Date: 20130916
  Transmission Date: 20140515
  Serious: Yes (Death, Other)
  Sender: FDA-Public Use
  Company Number: JP-009507513-1307JPN010245

PATIENT
  Age: 71 Year
  Sex: Male
  Weight: 53 kg

DRUGS (9)
  1. GASTER D [Suspect]
     Indication: PROPHYLAXIS AGAINST GASTROINTESTINAL ULCER
     Dosage: 10 MG, BID
     Route: 048
     Dates: start: 20081025, end: 20130711
  2. DEGARELIX [Suspect]
     Indication: PROSTATE CANCER METASTATIC
     Dosage: ONCE FOR WEEKS, UNK
     Route: 058
     Dates: start: 20130708, end: 20130708
  3. DECADRON TABLETS [Concomitant]
     Indication: PROSTATE CANCER METASTATIC
     Dosage: UNK
     Route: 048
     Dates: start: 20130311, end: 20130711
  4. LOXONIN [Concomitant]
     Indication: BACK PAIN
     Dosage: UNK
     Dates: start: 20120912, end: 20130711
  5. LOXONIN [Concomitant]
     Indication: PAIN IN EXTREMITY
  6. LAXOBERON [Concomitant]
     Indication: CONSTIPATION
     Route: 048
  7. TAXOTERE [Concomitant]
     Indication: PROSTATE CANCER METASTATIC
     Dosage: UNK
     Dates: start: 20110301, end: 20130115
  8. NASEA [Concomitant]
     Indication: CHEMOTHERAPY
     Dosage: UNK
     Dates: start: 20110301, end: 20130115
  9. POLARAMINE (DEXCHLORPHENIRAMINE MALEATE) [Concomitant]
     Indication: CHEMOTHERAPY

REACTIONS (2)
  - Prostate cancer [Fatal]
  - Off label use [Unknown]
